FAERS Safety Report 8762089 (Version 1)
Quarter: 2012Q4

REPORT INFORMATION
  Report Type: 
  Country: VN (occurrence: VN)
  Receive Date: 20120830
  Receipt Date: 20120830
  Transmission Date: 20130627
  Serious: Yes (Death)
  Sender: FDA-Public Use
  Company Number: VN-BAXTER-2012BAX015324

PATIENT
  Age: 73 Year
  Sex: Male

DRUGS (1)
  1. DIANEAL LOW CALCIUM (2,5MEQ.L) PERITIONEAL DIALYSIS SOLUTION WITH 1.5% [Suspect]
     Indication: CONTINUOUS AMBULATORY PERITONEAL DIALYSIS
     Dosage: 4 BAGS
     Route: 033
     Dates: start: 20120629, end: 20120801

REACTIONS (1)
  - Malnutrition [Fatal]
